FAERS Safety Report 10168670 (Version 2)
Quarter: 2014Q2

REPORT INFORMATION
  Report Type: Spontaneous
  Country: MQ (occurrence: None)
  Receive Date: 20140509
  Receipt Date: 20140519
  Transmission Date: 20141212
  Serious: Yes (Hospitalization)
  Sender: FDA-Public Use
  Company Number: MQ-015556

PATIENT
  Age: 83 Year
  Sex: Male
  Weight: 52 kg

DRUGS (3)
  1. FIRMAGON (FIRMAGON) 240 MG [Suspect]
     Indication: PROSTATE CANCER
     Route: 058
     Dates: start: 20140307, end: 20140307
  2. NIFEDIPINE [Concomitant]
  3. CAPTOPRIL HYDROCHLOROTHIAZIDE [Concomitant]

REACTIONS (2)
  - Rash papular [None]
  - Rash pruritic [None]
